FAERS Safety Report 4922549-5 (Version None)
Quarter: 2006Q1

REPORT INFORMATION
  Report Type: 
  Country: None (occurrence: None)
  Receive Date: 20060224
  Receipt Date: 20051215
  Transmission Date: 20060701
  Serious: Yes (Life-Threatening, Hospitalization)
  Sender: FDA-Public Use
  Company Number: US-GLAXOSMITHKLINE-A0585967A

PATIENT
  Age: 58 Year
  Sex: Female

DRUGS (4)
  1. PAXIL CR [Suspect]
     Indication: PANIC DISORDER
     Dosage: 25MG PER DAY
     Route: 048
     Dates: start: 19990101
  2. AMITRIPTYLINE HCL [Suspect]
  3. XANAX [Concomitant]
  4. PERCOCET [Concomitant]

REACTIONS (8)
  - ABDOMINAL DISCOMFORT [None]
  - ARRHYTHMIA [None]
  - CONFUSIONAL STATE [None]
  - DRUG INTERACTION [None]
  - DRUG LEVEL INCREASED [None]
  - DYSPHEMIA [None]
  - HALLUCINATION [None]
  - SUICIDE ATTEMPT [None]
